FAERS Safety Report 15517929 (Version 1)
Quarter: 2018Q4

REPORT INFORMATION
  Report Type: Spontaneous
  Country: CN (occurrence: CN)
  Receive Date: 20181017
  Receipt Date: 20181017
  Transmission Date: 20190205
  Serious: Yes (Other)
  Sender: FDA-Public Use
  Company Number: CN-FRESENIUS KABI-FK201810544

PATIENT
  Age: 67 Year
  Sex: Female

DRUGS (2)
  1. VITAMIN C INJECTION [Concomitant]
     Active Substance: ASCORBIC ACID
     Indication: DRUG THERAPY
     Dosage: 3G/QD
     Route: 042
     Dates: start: 20180702, end: 20180702
  2. INTRALIPID [Suspect]
     Active Substance: EGG PHOSPHOLIPIDS\GLYCERIN\SOYBEAN OIL
     Indication: ILL-DEFINED DISORDER
     Dosage: 250ML/QD
     Route: 042
     Dates: start: 20180702, end: 20180702

REACTIONS (2)
  - Chills [Recovering/Resolving]
  - Hyperpyrexia [Recovering/Resolving]

NARRATIVE: CASE EVENT DATE: 20180702
